FAERS Safety Report 9321469 (Version 1)
Quarter: 2013Q2

REPORT INFORMATION
  Report Type: Report from Study
  Country: US (occurrence: US)
  Receive Date: 20130531
  Receipt Date: 20130531
  Transmission Date: 20140414
  Serious: No
  Sender: FDA-Public Use
  Company Number: US-ASTRAZENECA-2013SE33672

PATIENT
  Age: 65 Year
  Sex: Male

DRUGS (9)
  1. NEXIUM [Suspect]
     Indication: DYSPEPSIA
     Route: 048
  2. PRILOSEC [Suspect]
     Indication: DYSPEPSIA
     Route: 048
  3. PRILOSEC [Suspect]
     Indication: DYSPEPSIA
     Dosage: GENERIC
     Route: 048
  4. AMLODIPINE [Concomitant]
     Indication: HYPERTENSION
  5. BABY ASA [Concomitant]
  6. CARVEDILOL [Concomitant]
  7. DIOVAN [Concomitant]
  8. EFFIENT [Concomitant]
  9. PRAVASTATIN [Concomitant]

REACTIONS (8)
  - Abdominal distension [Recovered/Resolved]
  - Blood cholesterol increased [Unknown]
  - Dyspepsia [Unknown]
  - Flatulence [Recovered/Resolved]
  - Gastric disorder [Unknown]
  - Muscle spasms [Recovered/Resolved]
  - Intentional drug misuse [Unknown]
  - Drug ineffective [Unknown]
